FAERS Safety Report 11131963 (Version 2)
Quarter: 2015Q2

REPORT INFORMATION
  Report Type: Spontaneous
  Country: AU (occurrence: None)
  Receive Date: 20150520
  Receipt Date: 20150601
  Transmission Date: 20150821
  Serious: Yes (Hospitalization, Other)
  Sender: FDA-Public Use
  Company Number: AU2015GSK065489

PATIENT
  Age: 76 Year
  Sex: Male

DRUGS (17)
  1. SOMAC [Concomitant]
     Active Substance: PANTOPRAZOLE SODIUM
  2. DUODART (DUTASTERIDE, TAMSULOSIN) [Concomitant]
  3. VENTOLIN CFC FREE (SALBUTAMOL SULPHATE) [Concomitant]
  4. WARFARIN SODIUM. [Concomitant]
     Active Substance: WARFARIN SODIUM
  5. KIVEXA [Suspect]
     Active Substance: ABACAVIR SULFATE\LAMIVUDINE
     Indication: HIV INFECTION
     Route: 048
     Dates: end: 20131015
  6. DOLUTEGRAVIR [Concomitant]
     Active Substance: DOLUTEGRAVIR
  7. DIABEX (METFORMIN HYDROCHLORIDE) [Concomitant]
  8. EXFORGE (AMLODIPINE BESILATE + VALSARTAN) [Concomitant]
  9. LIPIDIL (FENOFIBRATE) [Concomitant]
  10. EMTRICITABINE [Concomitant]
     Active Substance: EMTRICITABINE
  11. FRUSEMIDE [Concomitant]
     Active Substance: FUROSEMIDE
  12. CARDIPRIN (ASPIRIN) [Concomitant]
  13. FISH OIL [Concomitant]
     Active Substance: FISH OIL
  14. MINAX (METOPROLOL TARTRATE) [Concomitant]
  15. NEVIRAPINE (NEVIRAPINE) [Suspect]
     Active Substance: NEVIRAPINE
     Indication: HIV INFECTION
     Route: 048
  16. LIPITOR [Concomitant]
     Active Substance: ATORVASTATIN CALCIUM
  17. SPIRIVA [Concomitant]
     Active Substance: TIOTROPIUM BROMIDE MONOHYDRATE

REACTIONS (1)
  - Cerebrovascular accident [None]

NARRATIVE: CASE EVENT DATE: 20130516
